FAERS Safety Report 20201507 (Version 1)
Quarter: 2021Q4

REPORT INFORMATION
  Report Type: Spontaneous
  Country: PT (occurrence: PT)
  Receive Date: 20211217
  Receipt Date: 20211217
  Transmission Date: 20220304
  Serious: Yes (Life-Threatening)
  Sender: FDA-Public Use
  Company Number: PT-NOVARTISPH-NVSC2021PT289390

PATIENT
  Sex: Female

DRUGS (1)
  1. BISOPROLOL [Suspect]
     Active Substance: BISOPROLOL
     Indication: Product used for unknown indication
     Dosage: 5 MG, BID
     Route: 065

REACTIONS (2)
  - Feeling abnormal [Unknown]
  - Heart rate increased [Unknown]
